FAERS Safety Report 15603685 (Version 2)
Quarter: 2020Q3

REPORT INFORMATION
  Report Type: Spontaneous
  Country: NL (occurrence: NL)
  Receive Date: 20181109
  Receipt Date: 20200723
  Transmission Date: 20201102
  Serious: Yes (Hospitalization)
  Sender: FDA-Public Use
  Company Number: NL-PFIZER INC-2018455833

PATIENT
  Age: 52 Year
  Sex: Female
  Weight: 61 kg

DRUGS (10)
  1. PROVERA [Suspect]
     Active Substance: MEDROXYPROGESTERONE ACETATE
     Indication: CONTRACEPTION
     Dosage: 10 MG, 1X/DAY
     Route: 048
     Dates: start: 20171201, end: 20180831
  2. LACTULOSE SANDOZ [Concomitant]
     Dosage: 15 ML, 2X/DAY
  3. TEGRETOL [Concomitant]
     Active Substance: CARBAMAZEPINE
     Dosage: 6 ML, 3X/DAY
  4. DEPAKINE [VALPROATE SODIUM] [Concomitant]
     Active Substance: VALPROATE SODIUM
     Dosage: 8 ML, 3X/DAY
  5. CALCIUM SANDOZ [CALCIUM CARBONATE] [Concomitant]
     Active Substance: CALCIUM CARBONATE
     Dosage: 500 MG, 1X/DAY
  6. D?CURA [Concomitant]
     Dosage: 1 ML, MONTHLY
  7. RANITIDINE [RANITIDINE HYDROCHLORIDE] [Concomitant]
     Active Substance: RANITIDINE
     Dosage: 150 MG, 1X/DAY
  8. CIPRAMIL [CITALOPRAM HYDROCHLORIDE] [Concomitant]
     Active Substance: CITALOPRAM HYDROCHLORIDE
     Dosage: 8 GTT, 1X/DAY
  9. FENOBARBITAL [Concomitant]
     Active Substance: PHENOBARBITAL
     Dosage: 25 MG, 2X/DAY
  10. FOLIC ACID. [Concomitant]
     Active Substance: FOLIC ACID
     Dosage: UNK, 1X/DAY

REACTIONS (5)
  - Anticonvulsant drug level increased [Recovering/Resolving]
  - Off label use [Unknown]
  - Product use in unapproved indication [Unknown]
  - Weight decreased [Recovering/Resolving]
  - Product prescribing error [Unknown]

NARRATIVE: CASE EVENT DATE: 20171201
